FAERS Safety Report 8123467-4 (Version None)
Quarter: 2012Q1

REPORT INFORMATION
  Report Type: 
  Country: None (occurrence: None)
  Receive Date: 20120208
  Receipt Date: 20120126
  Transmission Date: 20120608
  Serious: Yes (Hospitalization, Other)
  Sender: FDA-Public Use
  Company Number: PHHY2012BR007996

PATIENT
  Sex: Male

DRUGS (9)
  1. ICAR [Concomitant]
     Indication: DIABETES MELLITUS
     Dosage: 100 MG, QD
  2. SOMALGIN [Concomitant]
     Dosage: 375 MG, QD
     Route: 048
  3. ATORVASTATIN CALCIUM [Concomitant]
     Indication: BLOOD CHOLESTEROL
     Dosage: 20 MG, QD
     Dates: start: 20030101
  4. INSULIN [Concomitant]
     Indication: DIABETES MELLITUS
     Dosage: 2 APPLICATIONS A DAY (68 UI IN THE MORNING AND 36 UI AT NIGHT), QD
  5. MEMANTINE HYDROCHLORIDE [Concomitant]
     Indication: DEMENTIA
     Dosage: 2 DF, QD
     Route: 048
  6. CYMBALTA [Concomitant]
     Dosage: 1 DF, QD
     Route: 048
  7. RITALIN [Suspect]
     Indication: DEPRESSION
     Dosage: 3 DF, TID
     Route: 048
     Dates: end: 20120128
  8. GALANTAMINE HYDROBROMIDE [Concomitant]
     Indication: DEMENTIA
     Dosage: 1 DF, QD
     Route: 048
  9. JANUVIA [Concomitant]
     Indication: DIABETES MELLITUS
     Dosage: 100 MG, QD
     Route: 048

REACTIONS (4)
  - DEPRESSION [None]
  - URINARY TRACT INFECTION [None]
  - DRUG INEFFECTIVE [None]
  - SOMNOLENCE [None]
